FAERS Safety Report 7115328-4 (Version None)
Quarter: 2010Q4

REPORT INFORMATION
  Report Type: 
  Country: None (occurrence: None)
  Receive Date: 20101122
  Receipt Date: 20101108
  Transmission Date: 20110411
  Serious: Yes (Death, Hospitalization, Other)
  Sender: FDA-Public Use
  Company Number: US-TYCO HEALTHCARE/MALLINCKRODT-T201001153

PATIENT
  Sex: Male
  Weight: 67.982 kg

DRUGS (21)
  1. EXALGO [Suspect]
     Indication: PAIN
     Dosage: 32 MG, QD
     Route: 048
     Dates: start: 20091213, end: 20091229
  2. DURAGESIC-100 [Suspect]
     Indication: PAIN
     Dosage: UNK
     Route: 062
     Dates: start: 20091229
  3. PREDNISONE [Suspect]
     Indication: PROSTATE CANCER
     Dosage: 5 MG, BID
     Route: 048
     Dates: start: 20091217, end: 20100111
  4. PALLADON                           /00080902/ [Suspect]
     Indication: PAIN
     Dosage: 26 ?G, QID
     Route: 048
     Dates: start: 20091125, end: 20091229
  5. SUNITINIB MALATE (SU-011, 248) [Suspect]
     Indication: PROSTATE CANCER
     Dosage: 37.5 MG, QD
     Route: 048
     Dates: start: 20091217, end: 20100107
  6. PLACEBO [Suspect]
     Indication: PROSTATE CANCER
     Dosage: 37.5 MG, QD
     Route: 048
     Dates: start: 20091217, end: 20100107
  7. LACTULOSE [Concomitant]
     Dosage: UNK
     Dates: start: 20100103
  8. HALDOL [Concomitant]
     Indication: NAUSEA
     Dosage: UNK
     Dates: start: 20091125, end: 20091229
  9. MOVICOL                            /01053601/ [Concomitant]
     Indication: CONSTIPATION
     Dosage: UNK
     Dates: start: 20091125
  10. METAMIZOLE [Concomitant]
     Indication: PAIN
     Dosage: UNK
     Dates: start: 20091125, end: 20091229
  11. LYRICA [Concomitant]
     Indication: PAIN
     Dosage: UNK
     Dates: start: 20091125, end: 20091229
  12. OMEPRAZOLE [Concomitant]
     Indication: GASTRITIS
     Dosage: UNK
     Dates: start: 20091125
  13. PAROXETINE HCL [Concomitant]
     Indication: DEPRESSION
     Dosage: UNK
     Dates: start: 20091125, end: 20091229
  14. METOCLOPRAMIDE HYDROCHLORIDE [Concomitant]
     Indication: NAUSEA
     Dosage: UNK
     Dates: start: 20091217
  15. KEVATRIL [Concomitant]
     Indication: NAUSEA
     Dosage: UNK
     Dates: start: 20091217, end: 20091229
  16. TAVOR                              /00273201/ [Concomitant]
     Indication: INSOMNIA
     Dosage: UNK
     Dates: start: 20091213, end: 20091217
  17. FUROSEMID                          /00032601/ [Concomitant]
     Indication: OEDEMA
     Dosage: UNK
     Dates: start: 20091228, end: 20091229
  18. SCOPODERM                          /00008701/ [Concomitant]
     Indication: PAIN
     Dosage: UNK
     Dates: start: 20091229
  19. AUGMENTAN                          /00756801/ [Concomitant]
     Dosage: UNK
     Dates: start: 20100102
  20. ZOMETA [Concomitant]
     Dosage: UNK
     Dates: start: 20080801
  21. ZOLADEX [Concomitant]
     Dosage: UNK
     Dates: start: 20090801

REACTIONS (13)
  - ALANINE AMINOTRANSFERASE INCREASED [None]
  - ASPARTATE AMINOTRANSFERASE INCREASED [None]
  - BLOOD ALKALINE PHOSPHATASE INCREASED [None]
  - BLOOD BILIRUBIN INCREASED [None]
  - BLOOD CREATININE INCREASED [None]
  - BLOOD UREA INCREASED [None]
  - BLOOD URIC ACID INCREASED [None]
  - DEHYDRATION [None]
  - DISEASE PROGRESSION [None]
  - GAMMA-GLUTAMYLTRANSFERASE INCREASED [None]
  - HEPATOTOXICITY [None]
  - HYPONATRAEMIA [None]
  - NARCOTIC INTOXICATION [None]
